FAERS Safety Report 25095189 (Version 1)
Quarter: 2025Q1

REPORT INFORMATION
  Report Type: Spontaneous
  Country: US (occurrence: None)
  Receive Date: 20250317
  Receipt Date: 20250317
  Transmission Date: 20250409
  Serious: No
  Sender: FDA-CTU
  Company Number: None

PATIENT

DRUGS (1)
  1. TRULICITY [Suspect]
     Active Substance: DULAGLUTIDE

REACTIONS (6)
  - Haemoglobin increased [None]
  - Diabetes mellitus [None]
  - Hypertension [None]
  - Hypolipidaemia [None]
  - Overweight [None]
  - Drug ineffective [None]
